FAERS Safety Report 21312226 (Version 1)
Quarter: 2022Q3

REPORT INFORMATION
  Report Type: Spontaneous
  Country: US (occurrence: None)
  Receive Date: 20220909
  Receipt Date: 20220909
  Transmission Date: 20221027
  Serious: No
  Sender: FDA-Public Use
  Company Number: US-ARIS GLOBAL-202205-0839

PATIENT
  Age: 82 Year
  Sex: Female

DRUGS (17)
  1. OXERVATE [Suspect]
     Active Substance: CENEGERMIN-BKBJ
     Indication: Neurotrophic keratopathy
     Route: 047
     Dates: start: 20220503
  2. CALCIUM LACTATE [Concomitant]
     Active Substance: CALCIUM LACTATE
  3. PROBIOTIC 10B CELL [Concomitant]
  4. VITAMINS [Concomitant]
     Active Substance: VITAMINS
  5. VITAMIN D3 [Concomitant]
     Active Substance: CHOLECALCIFEROL
     Dosage: 100000/G
  6. ZINC [Concomitant]
     Active Substance: ZINC
  7. SESAME OIL [Concomitant]
     Active Substance: SESAME OIL
     Dosage: OIL
  8. FLUOROMETHOLONE [Concomitant]
     Active Substance: FLUOROMETHOLONE
  9. ARTIFICIAL TEARS [Concomitant]
     Active Substance: GLYCERIN\HYPROMELLOSES\POLYETHYLENE GLYCOL 400
     Dosage: 0.1%-0.3%
  10. ERYTHROMYCIN [Concomitant]
     Active Substance: ERYTHROMYCIN
  11. FLONASE ALLERGY RELIEF [Concomitant]
     Active Substance: FLUTICASONE PROPIONATE
  12. ASPIRIN [Concomitant]
     Active Substance: ASPIRIN
  13. SIMVASTATIN [Concomitant]
     Active Substance: SIMVASTATIN
  14. VALSARTAN [Concomitant]
     Active Substance: VALSARTAN
  15. HYDROXYUREA [Concomitant]
     Active Substance: HYDROXYUREA
  16. DIETARY SUPPLEMENT [Concomitant]
     Active Substance: DIETARY SUPPLEMENT
  17. BETAFOOD [Concomitant]

REACTIONS (1)
  - Product administration error [Unknown]

NARRATIVE: CASE EVENT DATE: 20220506
